FAERS Safety Report 7205138-1 (Version None)
Quarter: 2010Q4

REPORT INFORMATION
  Report Type: 
  Country: None (occurrence: None)
  Receive Date: 20101231
  Receipt Date: 20101217
  Transmission Date: 20110411
  Serious: Yes (Hospitalization, Other)
  Sender: FDA-Public Use
  Company Number: US-RANBAXY-2010RR-40754

PATIENT
  Sex: Female

DRUGS (3)
  1. CIPROFLOXACIN [Suspect]
     Indication: SINUSITIS
     Dosage: UNK
     Route: 048
     Dates: start: 20050601
  2. LEVAQUIN [Suspect]
     Indication: SINUSITIS
     Dosage: UNK
     Route: 048
     Dates: start: 20070301
  3. LEVAQUIN [Suspect]
     Indication: CYSTITIS

REACTIONS (4)
  - JOINT DISLOCATION [None]
  - JOINT INJURY [None]
  - ROTATOR CUFF SYNDROME [None]
  - TENDON RUPTURE [None]
